FAERS Safety Report 5209555-0 (Version None)
Quarter: 2007Q1

REPORT INFORMATION
  Report Type: 
  Country: None (occurrence: None)
  Receive Date: 20070116
  Receipt Date: 20070104
  Transmission Date: 20070707
  Serious: Yes (Other)
  Sender: FDA-Public Use
  Company Number: FR-PFIZER INC-2007002254

PATIENT
  Sex: Female

DRUGS (5)
  1. ZARONTIN [Suspect]
     Indication: EPILEPSY
     Dosage: TEXT:1 CAPSULE, 2 CAPSULES
  2. ZARONTIN [Suspect]
     Dosage: DAILY DOSE:10MG
  3. LAMOTRIGINE [Concomitant]
  4. CARBAMAZEPINE [Concomitant]
  5. PHENOBARBITAL TAB [Concomitant]

REACTIONS (1)
  - EPILEPSY [None]
